FAERS Safety Report 6735261-7 (Version None)
Quarter: 2010Q2

REPORT INFORMATION
  Report Type: 
  Country: None (occurrence: None)
  Receive Date: 20100521
  Receipt Date: 20100511
  Transmission Date: 20101027
  Serious: Yes (Other)
  Sender: FDA-Public Use
  Company Number: JP-ABBOTT-10P-087-0637025-00

PATIENT
  Sex: Female
  Weight: 45.7 kg

DRUGS (10)
  1. KLARICID TABLETS [Suspect]
     Indication: BRONCHITIS
     Route: 048
     Dates: start: 20100330, end: 20100330
  2. FLECAINIDE ACETATE [Concomitant]
     Indication: ATRIAL FIBRILLATION
     Dosage: 400 MG DAILY
     Dates: start: 20070612
  3. PROPRANOLOL HYDROCHLORIDE [Concomitant]
     Indication: ANGINA PECTORIS
     Dosage: DAILY DOSE: 20MG
     Route: 048
  4. TRIMETAZIDINE HYDROCHLORIDE [Concomitant]
     Indication: ANGINA PECTORIS
     Dosage: DAILY DOSE: 6MG
     Route: 048
  5. MARZULENE S [Concomitant]
     Indication: GASTRITIS
     Dosage: DAILY DOSE: 6 GRAMS
     Route: 048
  6. NEO UMOR [Concomitant]
     Indication: GASTRITIS
     Dosage: DAILY DOSE: 6 GRAMS
     Route: 048
  7. ZOPICLONE [Concomitant]
     Indication: INSOMNIA
     Dosage: DAILY DOSE: 7.5MG
     Route: 048
  8. APHTASOLON [Concomitant]
     Indication: STOMATITIS
     Dosage: DAILY DOSE: 3 GM
     Route: 050
     Dates: start: 20100330
  9. CODEINE PHOSPHATE HYDRATE (UNKNOWN PRODUCT POW) [Concomitant]
     Indication: BRONCHITIS
     Dosage: DAILY DOSE: 30MG AS NEEDED
     Route: 048
     Dates: start: 20100330
  10. ASTOMIN [Concomitant]
     Indication: BRONCHITIS
     Dosage: DAILY DOSE: 200MG AS NEEDED
     Route: 048
     Dates: start: 20100330

REACTIONS (6)
  - ABASIA [None]
  - DIZZINESS [None]
  - HALLUCINATION, AUDITORY [None]
  - HEADACHE [None]
  - NAUSEA [None]
  - VOMITING [None]
